FAERS Safety Report 18270425 (Version 2)
Quarter: 2020Q3

REPORT INFORMATION
  Report Type: Spontaneous
  Country: GB (occurrence: GB)
  Receive Date: 20200915
  Receipt Date: 20200928
  Transmission Date: 20201103
  Serious: Yes (Other)
  Sender: FDA-Public Use
  Company Number: GB-TEVA-2020-GB-1827332

PATIENT
  Age: 4 Decade
  Sex: Female

DRUGS (5)
  1. MONTELUKAST [Concomitant]
     Active Substance: MONTELUKAST SODIUM
     Indication: IMMUNE RECONSTITUTION INFLAMMATORY SYNDROME ASSOCIATED TUBERCULOSIS
     Dosage: 10 MILLIGRAM DAILY;
     Route: 065
  2. EFAVIRENZ. [Concomitant]
     Active Substance: EFAVIRENZ
     Indication: HIV INFECTION
     Route: 065
  3. TENOFOVIR [Concomitant]
     Active Substance: TENOFOVIR
     Indication: HIV INFECTION
     Route: 065
  4. EMTRICITABINE [Concomitant]
     Active Substance: EMTRICITABINE
     Indication: HIV INFECTION
     Route: 065
  5. PREDNISOLONE. [Suspect]
     Active Substance: PREDNISOLONE
     Indication: IMMUNE RECONSTITUTION INFLAMMATORY SYNDROME ASSOCIATED TUBERCULOSIS
     Dosage: 60 MILLIGRAM DAILY;
     Route: 065

REACTIONS (6)
  - Urinary tract infection [Unknown]
  - Paradoxical drug reaction [Recovering/Resolving]
  - Cataract [Unknown]
  - Inflammation [Recovering/Resolving]
  - Steroid diabetes [Unknown]
  - Osteoporotic fracture [Unknown]
